FAERS Safety Report 7553908-2 (Version None)
Quarter: 2011Q2

REPORT INFORMATION
  Report Type: 
  Country: None (occurrence: None)
  Receive Date: 20110617
  Receipt Date: 20110601
  Transmission Date: 20111010
  Serious: No
  Sender: FDA-Public Use
  Company Number: US-B.I. PHARMACEUTICALS,INC./RIDGEFIELD-2011-BP-08665BP

PATIENT
  Age: 68 Year
  Sex: Female

DRUGS (5)
  1. TRAVATAN [Concomitant]
     Indication: GLAUCOMA
  2. LEVOTHYROXINE SODIUM [Concomitant]
  3. CLEMASTINE FUMARATE [Concomitant]
  4. ASPIRIN [Concomitant]
  5. SPIRIVA [Suspect]
     Indication: CHRONIC OBSTRUCTIVE PULMONARY DISEASE
     Route: 055

REACTIONS (2)
  - DRUG INEFFECTIVE [None]
  - EMPHYSEMA [None]
